FAERS Safety Report 5570836-2 (Version None)
Quarter: 2007Q4

REPORT INFORMATION
  Report Type: 
  Country: None (occurrence: None)
  Receive Date: 20071221
  Receipt Date: 20071218
  Transmission Date: 20080405
  Serious: Yes (Hospitalization, Other)
  Sender: FDA-Public Use
  Company Number: JP-WYE-H01829207

PATIENT
  Sex: Male
  Weight: 62 kg

DRUGS (12)
  1. MYLOTARG [Suspect]
     Indication: ACUTE MYELOID LEUKAEMIA RECURRENT
     Route: 041
     Dates: start: 20070419, end: 20070419
  2. MYLOTARG [Suspect]
     Route: 041
     Dates: start: 20070502, end: 20070502
  3. VFEND [Concomitant]
     Indication: PROPHYLAXIS
     Route: 048
     Dates: start: 20070419, end: 20070420
  4. VFEND [Concomitant]
     Route: 048
     Dates: start: 20070421, end: 20070516
  5. CIPROFLOXACIN HCL [Concomitant]
     Indication: PROPHYLAXIS
     Route: 048
     Dates: start: 20070419, end: 20070530
  6. HEPARIN [Concomitant]
     Indication: PROPHYLAXIS
     Route: 041
     Dates: start: 20070419, end: 20070508
  7. MUCOSTA [Concomitant]
     Indication: PROPHYLAXIS
     Route: 048
     Dates: start: 20070419, end: 20070530
  8. GASTER [Concomitant]
     Indication: PROPHYLAXIS
     Route: 048
     Dates: start: 20070419, end: 20070530
  9. SOLITA T [Concomitant]
     Indication: PROPHYLAXIS
     Route: 041
     Dates: start: 20070419, end: 20070530
  10. LACTEC [Concomitant]
     Indication: PROPHYLAXIS
     Route: 041
     Dates: start: 20070419, end: 20070530
  11. URSO 250 [Concomitant]
     Indication: PROPHYLAXIS
     Route: 048
     Dates: start: 20070418, end: 20070517
  12. ENTERONON [Concomitant]
     Indication: PROPHYLAXIS
     Route: 048
     Dates: start: 20070419, end: 20070530

REACTIONS (3)
  - PLATELET COUNT DECREASED [None]
  - PNEUMONIA FUNGAL [None]
  - WHITE BLOOD CELL COUNT DECREASED [None]
